FAERS Safety Report 16656999 (Version 1)
Quarter: 2019Q3

REPORT INFORMATION
  Report Type: Spontaneous
  Country: GB (occurrence: GB)
  Receive Date: 20190801
  Receipt Date: 20190801
  Transmission Date: 20191004
  Serious: Yes (Other)
  Sender: FDA-Public Use
  Company Number: GB-BAYER-2019-142404

PATIENT
  Age: 38 Year
  Sex: Female
  Weight: 81.64 kg

DRUGS (8)
  1. LYMECYCLINE [Concomitant]
     Active Substance: LYMECYCLINE
     Dosage: UNK
  2. METRONIDAZOLE. [Concomitant]
     Active Substance: METRONIDAZOLE
     Dosage: UNK
  3. CEFALEXIN [Concomitant]
     Active Substance: CEPHALEXIN
     Dosage: UNK
  4. CLINDAMYCIN. [Concomitant]
     Active Substance: CLINDAMYCIN
     Dosage: UNK
  5. RANITIDINE. [Concomitant]
     Active Substance: RANITIDINE
     Dosage: UNK
  6. ERYTHROMYCIN. [Concomitant]
     Active Substance: ERYTHROMYCIN
     Dosage: UNK
  7. PARACETAMOL [Concomitant]
     Active Substance: ACETAMINOPHEN
     Dosage: UNK
  8. CIPROXIN 500 MG [Suspect]
     Active Substance: CIPROFLOXACIN
     Indication: DIVERTICULITIS
     Dosage: 500 MG, UNK
     Route: 048
     Dates: start: 20190528, end: 20190604

REACTIONS (6)
  - Hallucination [Recovered/Resolved]
  - Abnormal behaviour [Recovered/Resolved]
  - Tremor [Recovered/Resolved]
  - Nausea [Unknown]
  - Delirium [Unknown]
  - Malaise [Recovered/Resolved]

NARRATIVE: CASE EVENT DATE: 20190528
